FAERS Safety Report 25051565 (Version 2)
Quarter: 2025Q1

REPORT INFORMATION
  Report Type: Spontaneous
  Country: GB (occurrence: GB)
  Receive Date: 20250307
  Receipt Date: 20250324
  Transmission Date: 20250408
  Serious: Yes (Disabling, Other)
  Sender: TEVA
  Company Number: None

PATIENT
  Age: 44 Year
  Sex: Male
  Weight: 73 kg

DRUGS (1)
  1. PRAMIPEXOLE [Suspect]
     Active Substance: PRAMIPEXOLE
     Indication: Restless legs syndrome
     Route: 065
     Dates: start: 20040601, end: 20210601

REACTIONS (3)
  - Restless leg augmentation syndrome [Recovered/Resolved with Sequelae]
  - Medication error [Unknown]
  - Mental impairment [Unknown]

NARRATIVE: CASE EVENT DATE: 20070701
